FAERS Safety Report 10393122 (Version 3)
Quarter: 2014Q4

REPORT INFORMATION
  Report Type: Spontaneous
  Country: BR (occurrence: BR)
  Receive Date: 20140819
  Receipt Date: 20141110
  Transmission Date: 20150528
  Serious: Yes (Other)
  Sender: FDA-Public Use
  Company Number: BR-PFIZER INC-2014226855

PATIENT
  Age: 78 Year
  Sex: Female

DRUGS (3)
  1. XALATAN [Suspect]
     Active Substance: LATANOPROST
     Indication: INTRAOCULAR PRESSURE INCREASED
  2. XALATAN [Suspect]
     Active Substance: LATANOPROST
     Indication: GLAUCOMA
  3. XALATAN [Suspect]
     Active Substance: LATANOPROST
     Indication: CATARACT
     Dosage: 2 DROPS, 1X/DAY
     Dates: start: 2003

REACTIONS (4)
  - Glaucoma [Unknown]
  - Cataract [Unknown]
  - Product use issue [Unknown]
  - Incorrect dosage administered [Unknown]

NARRATIVE: CASE EVENT DATE: 2004
